FAERS Safety Report 6420569-5 (Version None)
Quarter: 2009Q4

REPORT INFORMATION
  Report Type: 
  Country: None (occurrence: None)
  Receive Date: 20091029
  Receipt Date: 20091020
  Transmission Date: 20100525
  Serious: Yes (Other)
  Sender: FDA-Public Use
  Company Number: NL-MERCK-0910NLD00020

PATIENT
  Age: 63 Year
  Sex: Male

DRUGS (2)
  1. ZETIA [Suspect]
     Route: 048
     Dates: start: 20040801, end: 20090609
  2. ZOCOR [Suspect]
     Route: 048
     Dates: start: 20040801, end: 20090609

REACTIONS (1)
  - TENDONITIS [None]
